FAERS Safety Report 14800001 (Version 1)
Quarter: 2018Q2

REPORT INFORMATION
  Report Type: Spontaneous
  Country: JP (occurrence: JP)
  Receive Date: 20180424
  Receipt Date: 20180424
  Transmission Date: 20180711
  Serious: Yes (Other)
  Sender: FDA-Public Use
  Company Number: JP-GLAXOSMITHKLINE-JP2018JPN067690

PATIENT
  Age: 60 Year
  Sex: Female

DRUGS (3)
  1. FLUTIDE [Suspect]
     Active Substance: FLUTICASONE PROPIONATE
     Indication: ASTHMA
     Dosage: UNK UNK, BID
     Route: 055
  2. FLUTIDE [Suspect]
     Active Substance: FLUTICASONE PROPIONATE
     Dosage: 2 DF, UNK
     Route: 055
  3. TRANSAMIN [Concomitant]
     Active Substance: TRANEXAMIC ACID
     Dosage: UNK

REACTIONS (4)
  - Dry throat [Unknown]
  - Dysphonia [Unknown]
  - Oropharyngeal pain [Unknown]
  - Laryngeal oedema [Unknown]

NARRATIVE: CASE EVENT DATE: 2017
